FAERS Safety Report 4765847-0 (Version None)
Quarter: 2005Q3

REPORT INFORMATION
  Report Type: 
  Country: None (occurrence: None)
  Receive Date: 20050906
  Receipt Date: 20050831
  Transmission Date: 20060218
  Serious: Yes (Disabling)
  Sender: FDA-Public Use
  Company Number: RS005233-F

PATIENT
  Age: 77 Year
  Sex: Female

DRUGS (1)
  1. RABEPRAZOLE SODIUM [Suspect]
     Dosage: 20 MG, ORAL
     Route: 048
     Dates: start: 20040726, end: 20040801

REACTIONS (12)
  - ARTHRALGIA [None]
  - ASTHENIA [None]
  - BALANCE DISORDER [None]
  - EPISTAXIS [None]
  - FATIGUE [None]
  - GINGIVAL BLEEDING [None]
  - HEADACHE [None]
  - HOT FLUSH [None]
  - PLATELET COUNT INCREASED [None]
  - RED BLOOD CELL SEDIMENTATION RATE INCREASED [None]
  - SHOULDER PAIN [None]
  - TINNITUS [None]
